FAERS Safety Report 25370841 (Version 2)
Quarter: 2025Q3

REPORT INFORMATION
  Report Type: Report from Study
  Country: US (occurrence: US)
  Receive Date: 20250528
  Receipt Date: 20250802
  Transmission Date: 20251020
  Serious: Yes (Other)
  Sender: ALEXION PHARMACEUTICALS
  Company Number: US-AstraZeneca-CH-00878334A

PATIENT
  Sex: Female

DRUGS (1)
  1. OSIMERTINIB [Suspect]
     Active Substance: OSIMERTINIB
     Route: 065

REACTIONS (7)
  - Nail disorder [Unknown]
  - Onychoclasis [Unknown]
  - Noninfective gingivitis [Unknown]
  - Cheilitis [Unknown]
  - Muscle spasms [Unknown]
  - Visual impairment [Unknown]
  - Rectal prolapse [Unknown]

NARRATIVE: CASE EVENT DATE: 20250401
